FAERS Safety Report 7298699-8 (Version None)
Quarter: 2011Q1

REPORT INFORMATION
  Report Type: 
  Country: None (occurrence: None)
  Receive Date: 20110217
  Receipt Date: 20110208
  Transmission Date: 20110831
  Serious: Yes (Hospitalization)
  Sender: FDA-Public Use
  Company Number: FR-ELI_LILLY_AND_COMPANY-FR201102002212

PATIENT
  Sex: Female

DRUGS (6)
  1. EXENATIDE [Suspect]
     Indication: TYPE 2 DIABETES MELLITUS
     Dosage: 5 UG, UNK
     Dates: start: 20070625, end: 20070711
  2. METFORMIN [Suspect]
     Indication: TYPE 2 DIABETES MELLITUS
     Dosage: 1000 MG, 3/D
     Dates: start: 19890101
  3. TAHOR [Concomitant]
     Indication: DYSLIPIDAEMIA
     Dosage: 40 MG, UNK
  4. TRIATEC [Concomitant]
     Indication: HYPERTENSION
     Dosage: 10 MG, UNK
  5. FLUDEX LP [Concomitant]
     Indication: HYPERTENSION
     Dosage: 1.5 MG, UNK
  6. EXENATIDE [Suspect]
     Dosage: 10 UG, UNK
     Dates: start: 20070712

REACTIONS (1)
  - HOSPITALISATION [None]
